FAERS Safety Report 9494589 (Version 1)
Quarter: 2013Q3

REPORT INFORMATION
  Report Type: Spontaneous
  Country: AU (occurrence: None)
  Receive Date: 20130828
  Receipt Date: 20130828
  Transmission Date: 20140515
  Serious: Yes (Disabling)
  Sender: FDA-Public Use
  Company Number: SYM-2013-09566

PATIENT
  Age: 57 Year
  Sex: Female

DRUGS (2)
  1. TETRABENAZINE [Suspect]
     Indication: BALLISMUS
     Dosage: 2 IN 1 D
  2. TOPIRAMATE [Suspect]
     Indication: BALLISMUS
     Dosage: 2 IN 1 D

REACTIONS (5)
  - Therapeutic response decreased [None]
  - Mood altered [None]
  - Drug effect decreased [None]
  - Ballismus [None]
  - Disease recurrence [None]
